FAERS Safety Report 7756066-4 (Version None)
Quarter: 2011Q3

REPORT INFORMATION
  Report Type: 
  Country: None (occurrence: None)
  Receive Date: 20110916
  Receipt Date: 20100719
  Transmission Date: 20111222
  Serious: No
  Sender: FDA-Public Use
  Company Number: US-BAYER-201030856NA

PATIENT
  Sex: Female

DRUGS (1)
  1. MIRENA [Suspect]
     Dosage: 20 MCG/24HR, CONT
     Route: 015
     Dates: start: 20081101, end: 20100719

REACTIONS (4)
  - PURPURA [None]
  - PELVIC PAIN [None]
  - MENSTRUATION IRREGULAR [None]
  - ACNE [None]
